FAERS Safety Report 9393563 (Version 1)
Quarter: 2013Q3

REPORT INFORMATION
  Report Type: Spontaneous
  Country: US (occurrence: US)
  Receive Date: 20130710
  Receipt Date: 20130710
  Transmission Date: 20140515
  Serious: Yes (Hospitalization)
  Sender: FDA-Public Use
  Company Number: US-GLAXOSMITHKLINE-A0815214A

PATIENT
  Age: 56 Year
  Sex: Male

DRUGS (1)
  1. AVANDIA [Suspect]
     Indication: DIABETES MELLITUS
     Dosage: 4MG PER DAY
     Route: 048
     Dates: start: 200802, end: 20080731

REACTIONS (4)
  - Cerebrovascular accident [Recovered/Resolved]
  - Cardiac disorder [Unknown]
  - Arterial occlusive disease [Unknown]
  - Transient ischaemic attack [Unknown]
